FAERS Safety Report 20131015 (Version 1)
Quarter: 2021Q4

REPORT INFORMATION
  Report Type: Spontaneous
  Country: JP (occurrence: JP)
  Receive Date: 20211130
  Receipt Date: 20211130
  Transmission Date: 20220303
  Serious: Yes (Other)
  Sender: FDA-Public Use
  Company Number: JP-CELGENE-JPN-20211106269

PATIENT
  Age: 8 Decade
  Sex: Female

DRUGS (9)
  1. ABRAXANE [Suspect]
     Active Substance: PACLITAXEL
     Indication: Ductal adenocarcinoma of pancreas
     Route: 041
  2. GEMCITABINE [Concomitant]
     Active Substance: GEMCITABINE
     Indication: Ductal adenocarcinoma of pancreas
     Route: 041
  3. GEMCITABINE [Concomitant]
     Active Substance: GEMCITABINE
     Indication: Adenocarcinoma
  4. TEGAFUR [Concomitant]
     Active Substance: TEGAFUR
     Indication: Ductal adenocarcinoma of pancreas
     Route: 065
  5. TEGAFUR [Concomitant]
     Active Substance: TEGAFUR
     Indication: Adenocarcinoma
  6. GIMERACIL [Concomitant]
     Active Substance: GIMERACIL
     Indication: Ductal adenocarcinoma of pancreas
     Route: 065
  7. GIMERACIL [Concomitant]
     Active Substance: GIMERACIL
     Indication: Adenocarcinoma
  8. OTERACIL POTASSIUM [Concomitant]
     Active Substance: OTERACIL POTASSIUM
     Indication: Ductal adenocarcinoma of pancreas
     Route: 065
  9. OTERACIL POTASSIUM [Concomitant]
     Active Substance: OTERACIL POTASSIUM
     Indication: Adenocarcinoma

REACTIONS (2)
  - Vascular device infection [Unknown]
  - Cholangitis [Unknown]
